FAERS Safety Report 25097689 (Version 1)
Quarter: 2025Q1

REPORT INFORMATION
  Report Type: Spontaneous
  Country: FR (occurrence: FR)
  Receive Date: 20250320
  Receipt Date: 20250320
  Transmission Date: 20250409
  Serious: Yes (Other)
  Sender: TEVA
  Company Number: FR-TEVA-VS-3310568

PATIENT

DRUGS (17)
  1. CLARITHROMYCIN [Suspect]
     Active Substance: CLARITHROMYCIN
     Indication: Skin test
     Route: 023
  2. ROXITHROMYCIN [Concomitant]
     Active Substance: ROXITHROMYCIN
     Indication: Skin test
     Route: 023
  3. ROXITHROMYCIN [Concomitant]
     Active Substance: ROXITHROMYCIN
     Indication: Skin test
     Route: 065
  4. JOSAMYCIN [Concomitant]
     Active Substance: JOSAMYCIN
     Indication: Skin test
     Route: 065
  5. JOSAMYCIN [Concomitant]
     Active Substance: JOSAMYCIN
     Indication: Skin test
     Route: 023
  6. ERYTHROMYCIN [Concomitant]
     Active Substance: ERYTHROMYCIN
     Indication: Skin test
     Route: 065
  7. ERYTHROMYCIN [Concomitant]
     Active Substance: ERYTHROMYCIN
     Indication: Skin test
     Route: 023
  8. TELITHROMYCIN [Concomitant]
     Active Substance: TELITHROMYCIN
     Indication: Skin test
     Route: 065
  9. TELITHROMYCIN [Concomitant]
     Active Substance: TELITHROMYCIN
     Indication: Skin test
     Route: 023
  10. AZITHROMYCIN [Concomitant]
     Active Substance: AZITHROMYCIN
     Indication: Skin test
     Route: 065
  11. AZITHROMYCIN [Concomitant]
     Active Substance: AZITHROMYCIN
     Indication: Skin test
     Route: 023
  12. SPIRAMYCIN [Concomitant]
     Active Substance: SPIRAMYCIN
     Indication: Skin test
     Route: 023
  13. SPIRAMYCIN [Concomitant]
     Active Substance: SPIRAMYCIN
     Indication: Skin test
     Route: 065
  14. CLINDAMYCIN [Concomitant]
     Active Substance: CLINDAMYCIN
     Indication: Skin test
     Route: 023
  15. CLINDAMYCIN [Concomitant]
     Active Substance: CLINDAMYCIN
     Indication: Skin test
     Route: 065
  16. PRISTINAMYCIN [Suspect]
     Active Substance: PRISTINAMYCIN
     Indication: Antibiotic therapy
     Route: 048
  17. PRISTINAMYCIN [Suspect]
     Active Substance: PRISTINAMYCIN
     Indication: Antibiotic therapy
     Route: 065

REACTIONS (4)
  - Anaphylactic reaction [Unknown]
  - Cross sensitivity reaction [Unknown]
  - Type I hypersensitivity [Unknown]
  - Drug hypersensitivity [Unknown]
